FAERS Safety Report 4404162-1 (Version None)
Quarter: 2004Q3

REPORT INFORMATION
  Report Type: 
  Country: None (occurrence: None)
  Receive Date: 20040719
  Receipt Date: 20040707
  Transmission Date: 20050211
  Serious: No
  Sender: FDA-Public Use
  Company Number: 2004AC00178

PATIENT
  Age: 55 Year
  Sex: Female

DRUGS (6)
  1. CEFOTETAN [Suspect]
  2. HYDROCHLOROTHIAZIDE [Suspect]
  3. ATENOLOL [Concomitant]
  4. ESTROGEN [Concomitant]
  5. SERTRALINE HCL [Concomitant]
  6. THIAZIDE [Concomitant]

REACTIONS (2)
  - ANAEMIA HAEMOLYTIC AUTOIMMUNE [None]
  - POST PROCEDURAL COMPLICATION [None]
